FAERS Safety Report 4360740-X (Version None)
Quarter: 2004Q2

REPORT INFORMATION
  Report Type: 
  Country: None (occurrence: None)
  Receive Date: 20040520
  Receipt Date: 20040511
  Transmission Date: 20050107
  Serious: Yes (Hospitalization, Other)
  Sender: FDA-Public Use
  Company Number: 200411070DE

PATIENT
  Age: 54 Year
  Sex: Male

DRUGS (7)
  1. TAXOTERE [Suspect]
     Indication: BRONCHIAL CARCINOMA
     Dates: start: 20040301
  2. IBUPROFEN [Concomitant]
  3. PANTOZOL [Concomitant]
  4. ANALGESIC LIQ [Concomitant]
  5. MARCUMAR [Concomitant]
  6. CISPLATIN [Concomitant]
     Indication: BRONCHIAL CARCINOMA
  7. VINORELBIN [Concomitant]
     Indication: BRONCHIAL CARCINOMA

REACTIONS (5)
  - DEEP VEIN THROMBOSIS [None]
  - HAEMORRHAGE [None]
  - PANCYTOPENIA [None]
  - PARANEOPLASTIC SYNDROME [None]
  - SKIN DISCOLOURATION [None]
